FAERS Safety Report 6436783-9 (Version None)
Quarter: 2009Q4

REPORT INFORMATION
  Report Type: 
  Country: None (occurrence: None)
  Receive Date: 20091109
  Receipt Date: 20091027
  Transmission Date: 20100525
  Serious: Yes (Other)
  Sender: FDA-Public Use
  Company Number: 2009SP002923

PATIENT
  Age: 2 Year
  Sex: Female

DRUGS (2)
  1. XOPENEX [Suspect]
     Indication: BRONCHOPULMONARY DYSPLASIA
     Dosage: 1.25 MG/3ML; 1X; INHALATION
     Route: 055
  2. ALBUTEROL /00139501/ (CON.) [Concomitant]

REACTIONS (2)
  - FEBRILE CONVULSION [None]
  - GRAND MAL CONVULSION [None]
